FAERS Safety Report 16761165 (Version 1)
Quarter: 2019Q3

REPORT INFORMATION
  Report Type: Spontaneous
  Country: US (occurrence: US)
  Receive Date: 20190830
  Receipt Date: 20190830
  Transmission Date: 20191005
  Serious: No
  Sender: FDA-Public Use
  Company Number: US-ANIPHARMA-2019-US-003839

PATIENT
  Age: 60 Year
  Sex: Female
  Weight: 51.94 kg

DRUGS (5)
  1. ANASTROZOLE. [Suspect]
     Active Substance: ANASTROZOLE
     Indication: OESTROGEN RECEPTOR POSITIVE BREAST CANCER
     Route: 065
     Dates: start: 2008, end: 2010
  2. ZANTAC [Suspect]
     Active Substance: RANITIDINE HYDROCHLORIDE
     Dosage: 150 MG TABLET TAKEN BY MOUTH AS NEEDED
     Route: 048
  3. ZOMETA [Concomitant]
     Active Substance: ZOLEDRONIC ACID
     Dosage: INFUSION EVERY 3 MONTHS
     Route: 065
  4. LETROZOLE. [Suspect]
     Active Substance: LETROZOLE
     Dosage: 2.5 MG TABLET BY MOUTH 1 TIME DAILY
     Route: 048
     Dates: start: 201805
  5. IBRANCE [Suspect]
     Active Substance: PALBOCICLIB
     Dosage: 125MG CAPSULE BY MOUTH 1 TIME PER DAY FOR 21 DAYS
     Dates: start: 201805

REACTIONS (3)
  - Tumour marker increased [Unknown]
  - Drug ineffective [Recovered/Resolved]
  - Malaise [Unknown]

NARRATIVE: CASE EVENT DATE: 2008
